FAERS Safety Report 4824777-6 (Version None)
Quarter: 2005Q4

REPORT INFORMATION
  Report Type: 
  Country: None (occurrence: None)
  Receive Date: 20051108
  Receipt Date: 20051027
  Transmission Date: 20060501
  Serious: Yes (Congenital Anomaly)
  Sender: FDA-Public Use
  Company Number: FR_051007403

PATIENT

DRUGS (5)
  1. ZYPREXA [Suspect]
  2. CHLORPROMAZINE HCL [Concomitant]
  3. VIVALAN (VILOXAZINE HYDROCHLORIDE) [Concomitant]
  4. AKINETON /AUS/ (BIPERIDEN HYDROCHLORIDE) [Concomitant]
  5. ORAL CONTRACEPTIVE NOS [Concomitant]

REACTIONS (3)
  - ABORTION INDUCED [None]
  - DRUG EXPOSURE DURING PREGNANCY [None]
  - MULTIPLE CARDIAC DEFECTS [None]
